FAERS Safety Report 23249799 (Version 3)
Quarter: 2024Q3

REPORT INFORMATION
  Report Type: Report from Study
  Country: JP (occurrence: JP)
  Receive Date: 20231201
  Receipt Date: 20240716
  Transmission Date: 20241016
  Serious: No
  Sender: ASTELLAS
  Company Number: JP-ASTELLAS-2022JP005239

PATIENT
  Age: 79 Year
  Sex: Female
  Weight: 44 kg

DRUGS (7)
  1. ENFORTUMAB VEDOTIN-EJFV [Suspect]
     Active Substance: ENFORTUMAB VEDOTIN-EJFV
     Indication: Transitional cell carcinoma
     Route: 041
     Dates: start: 20220322, end: 20220322
  2. ENFORTUMAB VEDOTIN-EJFV [Suspect]
     Active Substance: ENFORTUMAB VEDOTIN-EJFV
     Dosage: 0.68 MG/KG, UNKNOWN FREQ.
     Route: 041
     Dates: start: 20220405, end: 20220405
  3. ENFORTUMAB VEDOTIN-EJFV [Suspect]
     Active Substance: ENFORTUMAB VEDOTIN-EJFV
     Dosage: 0.98 MG/KG, UNKNOWN FREQ.
     Route: 041
     Dates: start: 20220419, end: 20220502
  4. ENFORTUMAB VEDOTIN-EJFV [Suspect]
     Active Substance: ENFORTUMAB VEDOTIN-EJFV
     Dosage: 0.95 MG/KG, UNKNOWN FREQ.
     Route: 041
     Dates: start: 20220517, end: 20220517
  5. ENFORTUMAB VEDOTIN-EJFV [Suspect]
     Active Substance: ENFORTUMAB VEDOTIN-EJFV
     Dosage: 0.95 MG/KG, UNKNOWN FREQ.
     Route: 041
     Dates: start: 20220531, end: 20220531
  6. ENFORTUMAB VEDOTIN-EJFV [Suspect]
     Active Substance: ENFORTUMAB VEDOTIN-EJFV
     Dosage: 0.71 MG/KG, UNKNOWN FREQ.
     Route: 041
     Dates: start: 20220614, end: 20220621
  7. PEMBROLIZUMAB [Concomitant]
     Active Substance: PEMBROLIZUMAB
     Indication: Transitional cell carcinoma
     Dosage: UNK UNK, UNKNOWN FREQ.
     Route: 065
     Dates: start: 20180123, end: 20220228

REACTIONS (2)
  - Malaise [Recovering/Resolving]
  - Nausea [Recovered/Resolved]

NARRATIVE: CASE EVENT DATE: 20220324
